FAERS Safety Report 13531034 (Version 1)
Quarter: 2017Q2

REPORT INFORMATION
  Report Type: Spontaneous
  Country: US (occurrence: US)
  Receive Date: 20170510
  Receipt Date: 20170510
  Transmission Date: 20170830
  Serious: No
  Sender: FDA-Public Use
  Company Number: US-ASTRAZENECA-2015SE49874

PATIENT
  Age: 19025 Day
  Sex: Female
  Weight: 100.7 kg

DRUGS (12)
  1. PROVARIN [Concomitant]
     Indication: MULTIPLE ALLERGIES
     Route: 065
  2. HUMERA [Concomitant]
     Active Substance: ADALIMUMAB
     Indication: RHEUMATOID ARTHRITIS
     Dosage: 1 SHOT WEEKLY
     Route: 058
  3. PREDNISONE. [Concomitant]
     Active Substance: PREDNISONE
     Route: 065
  4. PROVARIN [Concomitant]
     Indication: IRON DEFICIENCY
     Route: 065
  5. BYDUREON [Suspect]
     Active Substance: EXENATIDE
     Indication: TYPE 2 DIABETES MELLITUS
     Route: 058
     Dates: start: 20150515
  6. ALLEGRA [Concomitant]
     Active Substance: FEXOFENADINE HYDROCHLORIDE
     Route: 048
  7. FEXOFENADINE [Concomitant]
     Active Substance: FEXOFENADINE\FEXOFENADINE HYDROCHLORIDE
     Indication: MULTIPLE ALLERGIES
     Route: 065
  8. IBUPROFEN. [Concomitant]
     Active Substance: IBUPROFEN
     Indication: RHEUMATOID ARTHRITIS
     Route: 065
  9. ATENOLOL. [Suspect]
     Active Substance: ATENOLOL
     Indication: TACHYCARDIA
     Route: 048
  10. VITAMIN B12 [Concomitant]
     Active Substance: CYANOCOBALAMIN
     Indication: MULTIPLE ALLERGIES
     Dosage: EVERY OTHER WEEK
     Route: 030
  11. METFORMIN [Concomitant]
     Active Substance: METFORMIN HYDROCHLORIDE
     Indication: TYPE 2 DIABETES MELLITUS
     Route: 048
  12. CYMBALTA [Concomitant]
     Active Substance: DULOXETINE HYDROCHLORIDE
     Indication: FIBROMYALGIA
     Route: 048

REACTIONS (7)
  - Fibromyalgia [Unknown]
  - Intentional product misuse [Unknown]
  - Rheumatoid arthritis [Unknown]
  - Device issue [Unknown]
  - Injection site extravasation [Unknown]
  - Injection site cyst [Unknown]
  - Blood glucose increased [Unknown]

NARRATIVE: CASE EVENT DATE: 20150515
